FAERS Safety Report 13849319 (Version 1)
Quarter: 2017Q3

REPORT INFORMATION
  Report Type: Spontaneous
  Country: US (occurrence: US)
  Receive Date: 20170809
  Receipt Date: 20170809
  Transmission Date: 20171127
  Serious: No
  Sender: FDA-Public Use
  Company Number: None

PATIENT
  Age: 79 Year
  Sex: Female
  Weight: 70.76 kg

DRUGS (11)
  1. CLARITIN [Concomitant]
     Active Substance: LORATADINE
  2. MULTIVITAMIN [Concomitant]
     Active Substance: VITAMINS
  3. SINGULAIR [Concomitant]
     Active Substance: MONTELUKAST SODIUM
  4. ZANTAC [Concomitant]
     Active Substance: RANITIDINE HYDROCHLORIDE
  5. ALDACTONE [Concomitant]
     Active Substance: SPIRONOLACTONE
  6. DESYREL [Concomitant]
     Active Substance: TRAZODONE HYDROCHLORIDE
  7. TRAZODONE [Suspect]
     Active Substance: TRAZODONE HYDROCHLORIDE
     Indication: INSOMNIA
     Dosage: STOPPED 3 OR 4 DAYS THEN STARTED AGAIN
     Route: 048
     Dates: start: 20170713
  8. RESTASIS [Concomitant]
     Active Substance: CYCLOSPORINE
  9. XANAX [Concomitant]
     Active Substance: ALPRAZOLAM
  10. ATACAND [Concomitant]
     Active Substance: CANDESARTAN CILEXETIL
  11. NORCO [Concomitant]
     Active Substance: ACETAMINOPHEN\HYDROCODONE BITARTRATE

REACTIONS (6)
  - Dizziness [None]
  - Gait disturbance [None]
  - Rash [None]
  - Ocular hyperaemia [None]
  - Pruritus [None]
  - Dry skin [None]

NARRATIVE: CASE EVENT DATE: 20170713
